FAERS Safety Report 9402411 (Version 1)
Quarter: 2013Q3

REPORT INFORMATION
  Report Type: Spontaneous
  Country: FR (occurrence: FR)
  Receive Date: 20130716
  Receipt Date: 20130716
  Transmission Date: 20140515
  Serious: Yes (Hospitalization, Other)
  Sender: FDA-Public Use
  Company Number: FR-ELI_LILLY_AND_COMPANY-FR201307003116

PATIENT
  Age: 55 Year
  Sex: Female

DRUGS (3)
  1. ZYPREXA [Suspect]
     Indication: BIPOLAR DISORDER
     Dosage: 10 MG, QD
     Route: 048
     Dates: start: 20130115, end: 20130214
  2. ZYPREXA [Suspect]
     Dosage: 10 MG, EACH EVENING
     Dates: start: 20130411
  3. LOXAPAC /00401801/ [Suspect]
     Indication: BIPOLAR DISORDER
     Dosage: 25 MG, UNK
     Route: 048
     Dates: start: 20130115

REACTIONS (6)
  - Sodium retention [Unknown]
  - Fluid retention [Unknown]
  - Face oedema [Not Recovered/Not Resolved]
  - Oedema peripheral [Not Recovered/Not Resolved]
  - Ascites [Unknown]
  - Shunt malfunction [Unknown]
